FAERS Safety Report 16315095 (Version 1)
Quarter: 2019Q2

REPORT INFORMATION
  Report Type: Report from Study
  Country: BR (occurrence: BR)
  Receive Date: 20190515
  Receipt Date: 20190515
  Transmission Date: 20190711
  Serious: Yes (Hospitalization)
  Sender: FDA-Public Use
  Company Number: BR-SA-2019SA126745

PATIENT
  Age: 56 Year
  Sex: Male

DRUGS (3)
  1. INSULIN GLARGINE [Suspect]
     Active Substance: INSULIN GLARGINE
     Dosage: 15 IU, ONCE A DAY
     Route: 065
  2. INSULIN GLARGINE [Suspect]
     Active Substance: INSULIN GLARGINE
     Dosage: 10 IU IN THE MORNING AND 5 IU PER NIGHT
     Route: 058
     Dates: start: 201901, end: 201902
  3. INSULIN GLARGINE [Suspect]
     Active Substance: INSULIN GLARGINE
     Indication: TYPE 1 DIABETES MELLITUS
     Dosage: 10 IU IN THE MORNING AND 5 IU PER NIGHT
     Route: 058

REACTIONS (9)
  - Device related infection [Unknown]
  - Renal failure [Unknown]
  - Hyperglycaemia [Unknown]
  - Renal failure [Unknown]
  - Infarction [Unknown]
  - Deafness [Unknown]
  - Inappropriate schedule of product administration [Unknown]
  - Plasma cell myeloma [Unknown]
  - Bone cancer [Unknown]

NARRATIVE: CASE EVENT DATE: 201901
